FAERS Safety Report 21753184 (Version 1)
Quarter: 2022Q4

REPORT INFORMATION
  Report Type: Report from Study
  Country: PT (occurrence: PT)
  Receive Date: 20221220
  Receipt Date: 20221220
  Transmission Date: 20230113
  Serious: Yes (Other)
  Sender: FDA-Public Use
  Company Number: PT-ABBVIE-22K-130-4429144-00

PATIENT
  Age: 66 Year
  Sex: Male

DRUGS (17)
  1. CARBIDOPA\LEVODOPA [Suspect]
     Active Substance: CARBIDOPA\LEVODOPA
     Indication: Parkinson^s disease
     Dosage: 20 MG + 5 MG?MORN:10ML;MAIN:1.5ML/H;EXTRA:1ML
     Route: 050
     Dates: start: 20211014, end: 2022
  2. CARBIDOPA\LEVODOPA [Suspect]
     Active Substance: CARBIDOPA\LEVODOPA
     Dosage: 20 MG + 5 MG?MORN:15CC;MAIN:5.2CC/H EXTRA:2CC
     Route: 050
     Dates: start: 2022, end: 2022
  3. CARBIDOPA\LEVODOPA [Suspect]
     Active Substance: CARBIDOPA\LEVODOPA
     Dosage: 20 MG + 5 MG?MORN:15CC;MAIN:5CC/H;EXTRA:3CC
     Route: 050
     Dates: start: 202210, end: 20221115
  4. CARBIDOPA\LEVODOPA [Suspect]
     Active Substance: CARBIDOPA\LEVODOPA
     Dosage: 20 MG + 5 MG?15CC;MAIN:5.2CC/H;EXTRA:3CC
     Route: 050
     Dates: start: 2022, end: 2022
  5. CARBIDOPA\LEVODOPA [Suspect]
     Active Substance: CARBIDOPA\LEVODOPA
     Dosage: 20 MG + 5 MG
     Route: 050
     Dates: start: 20221115
  6. SINEMET CR [Concomitant]
     Active Substance: CARBIDOPA\LEVODOPA
     Indication: Product used for unknown indication
     Dosage: STARTED BEFORE DUODOPA?2 TABLETS AT BEDTIME
  7. DIAZEPAM [Concomitant]
     Active Substance: DIAZEPAM
     Indication: Product used for unknown indication
     Dosage: STARTED BEFORE DUODOPA?1 TABLET AT BED TIME
     Route: 065
     Dates: end: 2022
  8. DOMPERIDONE [Concomitant]
     Active Substance: DOMPERIDONE
     Indication: Product used for unknown indication
     Dosage: TIME INTERVAL: 0.33333333 DAYS
     Dates: start: 202110
  9. TRAZODONE [Concomitant]
     Active Substance: TRAZODONE HYDROCHLORIDE
     Indication: Product used for unknown indication
     Dosage: 1/2 TABLET AT BEDTIME
     Dates: start: 202110
  10. ESOMEPRAZOLE [Concomitant]
     Active Substance: ESOMEPRAZOLE
     Indication: Product used for unknown indication
     Dosage: IN FASTING
     Dates: start: 202110
  11. FOLIC ACID [Concomitant]
     Active Substance: FOLIC ACID
     Indication: Product used for unknown indication
     Dosage: 1 TABLET IN LUNCH
     Dates: start: 202110
  12. BEDOZE [Concomitant]
     Indication: Product used for unknown indication
     Dosage: 1 TABLET AT LUNCH?FORM STRENGTH: 1MG
     Dates: start: 202110
  13. cyanocobalamin 1MG [Concomitant]
     Indication: Product used for unknown indication
     Dosage: 1 TABLET
     Dates: start: 202110
  14. cyanocobalamin 1MG [Concomitant]
     Indication: Product used for unknown indication
     Dosage: FORM STRENGTH: 1 MILLIGRAM, FREQUENCY TEXT: 1 TABLET AT LUNCH
     Dates: start: 202110
  15. RISPERDAL [Concomitant]
     Active Substance: RISPERIDONE
     Indication: Psychotic disorder
     Dosage: IN SOS
     Dates: start: 20220228, end: 2022
  16. QUETIAPINE [Concomitant]
     Active Substance: QUETIAPINE
     Indication: Psychotic disorder
     Dates: start: 20220302
  17. QUETIAPINE [Concomitant]
     Active Substance: QUETIAPINE
     Indication: Psychotic disorder
     Dates: start: 20220302

REACTIONS (6)
  - Stoma site discharge [Recovering/Resolving]
  - Stoma site discharge [Recovered/Resolved]
  - Staphylococcal infection [Not Recovered/Not Resolved]
  - Stoma site hypergranulation [Recovering/Resolving]
  - Stoma site odour [Recovered/Resolved]
  - Stoma site discharge [Not Recovered/Not Resolved]

NARRATIVE: CASE EVENT DATE: 20220601
